FAERS Safety Report 10545205 (Version 1)
Quarter: 2014Q4

REPORT INFORMATION
  Report Type: Spontaneous
  Country: US (occurrence: US)
  Receive Date: 20141027
  Receipt Date: 20141027
  Transmission Date: 20150529
  Serious: Yes (Other)
  Sender: FDA-Public Use
  Company Number: US-BAYER-2014-154256

PATIENT
  Age: 8 Year
  Sex: Female

DRUGS (1)
  1. BAYER LOW DOSE [Suspect]
     Active Substance: ASPIRIN
     Indication: ANALGESIC THERAPY
     Dosage: 1 DF, ONCE
     Route: 048
     Dates: start: 1997, end: 1997

REACTIONS (6)
  - Throat tightness [None]
  - Medication error [None]
  - Drug hypersensitivity [None]
  - Wheezing [None]
  - Cough [None]
  - Swelling face [None]

NARRATIVE: CASE EVENT DATE: 1997
